FAERS Safety Report 21768560 (Version 1)
Quarter: 2022Q4

REPORT INFORMATION
  Report Type: Spontaneous
  Country: FR (occurrence: FR)
  Receive Date: 20221222
  Receipt Date: 20221222
  Transmission Date: 20230112
  Serious: Yes (Death, Hospitalization, Other)
  Sender: FDA-Public Use
  Company Number: FR-BAXTER-2022BAX026250

PATIENT
  Sex: Male

DRUGS (3)
  1. UNSPECIFIED INGREDIENT [Suspect]
     Active Substance: UNSPECIFIED INGREDIENT
     Indication: Product used for unknown indication
     Dosage: TREATMENT LINE NUMBER 1, DURATION: 0 MONTHS
     Dates: end: 20181129
  2. CYCLOPHOSPHAMIDE [Suspect]
     Active Substance: CYCLOPHOSPHAMIDE
     Indication: Product used for unknown indication
     Dosage: UNK
     Dates: end: 20181129
  3. BORTEZOMIB [Suspect]
     Active Substance: BORTEZOMIB
     Indication: Product used for unknown indication
     Dosage: TREATMENT LINE NUMBER 1, DURATION: 0 MONTHS
     Dates: end: 20181129

REACTIONS (3)
  - Sepsis [Fatal]
  - General physical health deterioration [Unknown]
  - Delirium [Unknown]

NARRATIVE: CASE EVENT DATE: 20181129
